FAERS Safety Report 26181551 (Version 1)
Quarter: 2025Q4

REPORT INFORMATION
  Report Type: Spontaneous
  Country: KR (occurrence: KR)
  Receive Date: 20251221
  Receipt Date: 20251221
  Transmission Date: 20260118
  Serious: Yes (Other)
  Sender: MYLAN
  Company Number: KR-MYLANLABS-2025M1107467

PATIENT
  Sex: Female
  Weight: 51 kg

DRUGS (4)
  1. CELEBREX [Suspect]
     Active Substance: CELECOXIB
     Indication: Anaphylactic shock
     Dosage: 1 DOSAGE FORM, QD (ONCE DAILY)
     Dates: start: 20140411, end: 20140411
  2. CELEBREX [Suspect]
     Active Substance: CELECOXIB
     Dosage: 1 DOSAGE FORM, QD (ONCE DAILY)
     Route: 065
     Dates: start: 20140411, end: 20140411
  3. CELEBREX [Suspect]
     Active Substance: CELECOXIB
     Dosage: 1 DOSAGE FORM, QD (ONCE DAILY)
     Route: 065
     Dates: start: 20140411, end: 20140411
  4. CELEBREX [Suspect]
     Active Substance: CELECOXIB
     Dosage: 1 DOSAGE FORM, QD (ONCE DAILY)
     Dates: start: 20140411, end: 20140411

REACTIONS (4)
  - Hypotension [Recovered/Resolved]
  - Angioedema [Recovered/Resolved]
  - Face oedema [Recovered/Resolved]
  - Product use in unapproved indication [Unknown]

NARRATIVE: CASE EVENT DATE: 20140411
